FAERS Safety Report 10248888 (Version 2)
Quarter: 2014Q2

REPORT INFORMATION
  Report Type: Spontaneous
  Country: US (occurrence: US)
  Receive Date: 20140620
  Receipt Date: 20140620
  Transmission Date: 20141212
  Serious: Yes (Other)
  Sender: FDA-Public Use
  Company Number: US-JNJFOC-20140413149

PATIENT
  Age: 48 Year
  Sex: Female
  Weight: 52.16 kg

DRUGS (4)
  1. TOPAMAX [Suspect]
     Indication: BIPOLAR DISORDER
     Route: 048
     Dates: start: 2007
  2. TOPIRAMATE [Suspect]
     Indication: BIPOLAR DISORDER
     Route: 048
  3. DEPAKOTE [Suspect]
     Indication: PRODUCT USED FOR UNKNOWN INDICATION
     Route: 065
  4. WELLBUTRIN [Concomitant]
     Indication: PRODUCT USED FOR UNKNOWN INDICATION
     Route: 065

REACTIONS (4)
  - Metabolic acidosis [Unknown]
  - Osteoporosis [Unknown]
  - Spinal compression fracture [Recovering/Resolving]
  - Off label use [Unknown]
